FAERS Safety Report 7744260-8 (Version None)
Quarter: 2011Q3

REPORT INFORMATION
  Report Type: 
  Country: None (occurrence: None)
  Receive Date: 20110912
  Receipt Date: 20110906
  Transmission Date: 20111222
  Serious: Yes (Hospitalization)
  Sender: FDA-Public Use
  Company Number: PHHO2011US06970

PATIENT
  Sex: Male
  Weight: 84.4 kg

DRUGS (4)
  1. BLINDED NO TREATMENT RECEIVED [Suspect]
     Indication: HEPATIC NEOPLASM MALIGNANT
     Dosage: CODE NOT BROKEN
     Route: 048
     Dates: start: 20110304, end: 20110414
  2. AMOXICILLIN [Suspect]
     Indication: UPPER RESPIRATORY TRACT INFECTION
     Dosage: 500 MG, TID
     Dates: start: 20110409, end: 20110414
  3. AFINITOR [Suspect]
     Indication: HEPATIC NEOPLASM MALIGNANT
     Dosage: CODE NOT BROKEN
     Route: 048
     Dates: start: 20110304, end: 20110414
  4. PLACEBO [Suspect]
     Indication: HEPATIC NEOPLASM MALIGNANT
     Dosage: CODE NOT BROKEN
     Route: 048
     Dates: start: 20110304, end: 20110414

REACTIONS (3)
  - HYPERBILIRUBINAEMIA [None]
  - ABDOMINAL PAIN [None]
  - JAUNDICE CHOLESTATIC [None]
